FAERS Safety Report 24848031 (Version 1)
Quarter: 2025Q1

REPORT INFORMATION
  Report Type: Report from Study
  Country: US (occurrence: US)
  Receive Date: 20250116
  Receipt Date: 20250116
  Transmission Date: 20250408
  Serious: Yes (Other)
  Sender: BAUSCH AND LOMB
  Company Number: US-BAUSCH-BL-2024-002001

PATIENT
  Age: 71 Year
  Sex: Male

DRUGS (2)
  1. XIFAXAN [Suspect]
     Active Substance: RIFAXIMIN
     Indication: Product used for unknown indication
     Route: 065
  2. XIFAXAN [Suspect]
     Active Substance: RIFAXIMIN
     Dosage: BID
     Route: 048

REACTIONS (4)
  - Dementia Alzheimer^s type [Unknown]
  - Therapy interrupted [Unknown]
  - Insurance issue [Unknown]
  - Inability to afford medication [Unknown]

NARRATIVE: CASE EVENT DATE: 20240206
